FAERS Safety Report 4682592-0 (Version None)
Quarter: 2005Q2

REPORT INFORMATION
  Report Type: 
  Country: None (occurrence: None)
  Receive Date: 20050606
  Receipt Date: 20050524
  Transmission Date: 20051028
  Serious: Yes (Hospitalization, Other)
  Sender: FDA-Public Use
  Company Number: FR-MERCK-0505FRA00100

PATIENT
  Age: 70 Year
  Sex: Female

DRUGS (7)
  1. CANCIDAS [Suspect]
     Indication: FUNGAEMIA
     Route: 042
  2. CANCIDAS [Suspect]
     Route: 042
  3. FLUCONAZOLE [Suspect]
     Indication: FUNGAEMIA
     Route: 042
  4. VORICONAZOLE [Suspect]
     Indication: SYSTEMIC CANDIDA
     Route: 042
  5. VORICONAZOLE [Suspect]
     Route: 042
  6. [THERAPY UNSPECIFIED] [Concomitant]
     Indication: THROMBOPHLEBITIS
     Route: 065
  7. AMINO ACIDS (UNSPECIFIED) AND CARBOHYDRATES (UNSPECIFIED) AND ELECTROL [Concomitant]
     Indication: ENTERAL NUTRITION
     Route: 065

REACTIONS (3)
  - ATRIAL THROMBOSIS [None]
  - DRUG INEFFECTIVE [None]
  - ENDOCARDITIS [None]
